FAERS Safety Report 21320781 (Version 1)
Quarter: 2022Q3

REPORT INFORMATION
  Report Type: Spontaneous
  Country: None (occurrence: CA)
  Receive Date: 20220912
  Receipt Date: 20220912
  Transmission Date: 20221026
  Serious: Yes (Other)
  Sender: FDA-Public Use
  Company Number: CA-AKCEA THERAPEUTICS, INC.-2022IS003985

PATIENT
  Age: 59 Year
  Sex: Female
  Weight: 35.091 kg

DRUGS (11)
  1. TEGSEDI [Suspect]
     Active Substance: INOTERSEN SODIUM
     Route: 058
  2. DEVICE [Suspect]
     Active Substance: DEVICE
  3. TEGSEDI [Suspect]
     Active Substance: INOTERSEN SODIUM
     Route: 058
  4. TEGSEDI [Suspect]
     Active Substance: INOTERSEN SODIUM
     Route: 058
  5. TEGSEDI [Suspect]
     Active Substance: INOTERSEN SODIUM
     Route: 058
  6. ASCORBIC ACID [Concomitant]
     Active Substance: ASCORBIC ACID
     Route: 065
  7. GLICLAZIDE [Concomitant]
     Active Substance: GLICLAZIDE
     Route: 065
  8. MIDODRINE [Concomitant]
     Active Substance: MIDODRINE
     Route: 065
  9. VAGISIL MEDICATED CREAM [Concomitant]
     Route: 065
  10. VENIXXA [Concomitant]
     Route: 048
  11. VITAMIN D NOS [Concomitant]
     Active Substance: VITAMIN D NOS
     Route: 065

REACTIONS (40)
  - Abdominal discomfort [Unknown]
  - Abdominal pain upper [Unknown]
  - Anisocoria [Unknown]
  - Dizziness postural [Unknown]
  - Drug ineffective [Unknown]
  - Faeces discoloured [Unknown]
  - Feeling abnormal [Unknown]
  - Frequent bowel movements [Unknown]
  - Gastrointestinal disorder [Unknown]
  - Haemorrhoids [Unknown]
  - Heart rate decreased [Unknown]
  - Hereditary neuropathic amyloidosis [Unknown]
  - Hypophagia [Unknown]
  - Insomnia [Unknown]
  - Irritable bowel syndrome [Unknown]
  - Malaise [Unknown]
  - Pain [Unknown]
  - Petechiae [Unknown]
  - Pupillary deformity [Unknown]
  - Sensory loss [Unknown]
  - Tinnitus [Unknown]
  - Dizziness [Unknown]
  - Visual impairment [Unknown]
  - Weight decreased [Unknown]
  - Urinary tract infection [Unknown]
  - Injection site mass [Unknown]
  - Injection site urticaria [Unknown]
  - Abdominal distension [Unknown]
  - Diarrhoea [Unknown]
  - Constipation [Unknown]
  - Fatigue [Unknown]
  - Presyncope [Unknown]
  - Hypotension [Unknown]
  - Chills [Unknown]
  - Headache [Unknown]
  - Injection site pain [Unknown]
  - Injection site swelling [Unknown]
  - Nausea [Unknown]
  - Pyrexia [Unknown]
  - Vitamin A decreased [Unknown]
